FAERS Safety Report 18570151 (Version 1)
Quarter: 2020Q4

REPORT INFORMATION
  Report Type: Spontaneous
  Country: US (occurrence: US)
  Receive Date: 20201201
  Receipt Date: 20201201
  Transmission Date: 20210114
  Serious: No
  Sender: FDA-Public Use
  Company Number: None

PATIENT
  Age: 54 Year
  Sex: Female

DRUGS (1)
  1. QSYMIA [Suspect]
     Active Substance: PHENTERMINE HYDROCHLORIDE\TOPIRAMATE
     Indication: OBESITY
     Dosage: OTHER DOSE:15MG/92MG;?
     Route: 048
     Dates: start: 20180405

REACTIONS (6)
  - Crying [None]
  - Weight increased [None]
  - Paraesthesia [None]
  - Drug ineffective [None]
  - Depressed mood [None]
  - Mood altered [None]

NARRATIVE: CASE EVENT DATE: 20201201
